FAERS Safety Report 4691756-1 (Version None)
Quarter: 2005Q2

REPORT INFORMATION
  Report Type: 
  Country: None (occurrence: None)
  Receive Date: 20050614
  Receipt Date: 20050614
  Transmission Date: 20051028
  Serious: Yes (Death)
  Sender: FDA-Public Use
  Company Number: None

PATIENT
  Age: 35 Year
  Sex: Male
  Weight: 81.6475 kg

DRUGS (2)
  1. ZYPREXA [Suspect]
     Indication: DEPRESSION
     Dosage: 15MG AT BEDTIME ORAL
     Route: 048
     Dates: start: 20021018, end: 20040915
  2. ZYPREXA [Suspect]
     Indication: MOOD SWINGS
     Dosage: 15MG AT BEDTIME ORAL
     Route: 048
     Dates: start: 20021018, end: 20040915

REACTIONS (6)
  - ABDOMINAL PAIN UPPER [None]
  - DIABETES MELLITUS [None]
  - MALAISE [None]
  - OBESITY [None]
  - PANCREATITIS ACUTE [None]
  - VOMITING [None]
